FAERS Safety Report 7640356-X (Version None)
Quarter: 2011Q3

REPORT INFORMATION
  Report Type: 
  Country: None (occurrence: None)
  Receive Date: 20110728
  Receipt Date: 20110629
  Transmission Date: 20111222
  Serious: No
  Sender: FDA-Public Use
  Company Number: US-BAYER-2011-058775

PATIENT
  Age: 68 Year
  Sex: Female
  Weight: 66 kg

DRUGS (4)
  1. METFORMIN HCL [Concomitant]
  2. ALEVE (CAPLET) [Suspect]
     Indication: PAIN
     Dosage: 220 MG, QD
     Dates: start: 20110608
  3. VITAMINS NOS [Concomitant]
  4. JANUVIA [Concomitant]

REACTIONS (2)
  - ABDOMINAL DISCOMFORT [None]
  - PAIN [None]
